FAERS Safety Report 9945465 (Version 1)
Quarter: 2014Q1

REPORT INFORMATION
  Report Type: Report from Study
  Country: US (occurrence: US)
  Receive Date: 20140303
  Receipt Date: 20140303
  Transmission Date: 20141002
  Serious: No
  Sender: FDA-Public Use
  Company Number: US-ABBVIE-13P-163-1055543-00

PATIENT
  Age: 73 Year
  Sex: Male

DRUGS (15)
  1. HUMIRA [Suspect]
     Indication: PSORIASIS
     Dates: start: 20130208, end: 20130208
  2. HUMIRA [Suspect]
     Dates: start: 20130222
  3. FLOMAX [Concomitant]
     Indication: BENIGN PROSTATIC HYPERPLASIA
  4. METHOTREXATE [Concomitant]
     Indication: PSORIASIS
     Dosage: 4 TABLETS EVERY WEDNESDAY
  5. FOLIC ACID [Concomitant]
     Indication: PRODUCT USED FOR UNKNOWN INDICATION
  6. ATORVASTATIN [Concomitant]
     Indication: BLOOD CHOLESTEROL INCREASED
  7. FAMOTIDINE [Concomitant]
     Indication: PROPHYLAXIS AGAINST GASTROINTESTINAL ULCER
  8. ZOLPIDEM TARTRATE [Concomitant]
     Indication: INSOMNIA
     Dosage: AT NIGHT
  9. ALPRAZOLAM [Concomitant]
     Indication: INSOMNIA
     Dosage: AT NIGHT
  10. PLAVIX [Concomitant]
     Indication: CORONARY ARTERIAL STENT INSERTION
  11. ASPIRIN [Concomitant]
     Indication: PRODUCT USED FOR UNKNOWN INDICATION
  12. BUSPIRONE HCL [Concomitant]
     Indication: ANXIETY
  13. PAXIL [Concomitant]
     Indication: DEPRESSION
  14. LEVOTHYROXINE [Concomitant]
     Indication: HYPOTHYROIDISM
  15. METOPROLOL [Concomitant]
     Indication: HYPERTENSION

REACTIONS (4)
  - Chromaturia [Recovered/Resolved]
  - Urine odour abnormal [Recovered/Resolved]
  - Chromaturia [Recovering/Resolving]
  - Urine odour abnormal [Recovering/Resolving]
